FAERS Safety Report 17629423 (Version 1)
Quarter: 2020Q2

REPORT INFORMATION
  Report Type: Spontaneous
  Country: CA (occurrence: CA)
  Receive Date: 20200406
  Receipt Date: 20200406
  Transmission Date: 20200713
  Serious: Yes (Death, Hospitalization, Other)
  Sender: FDA-Public Use
  Company Number: CA-IPCA LABORATORIES LIMITED-IPC-2020-CA-001005

PATIENT

DRUGS (2)
  1. WARFARIN [Suspect]
     Active Substance: WARFARIN
     Indication: ANTICOAGULANT THERAPY
     Dosage: UNK
     Route: 065
  2. HEPARIN [Suspect]
     Active Substance: HEPARIN SODIUM
     Indication: ANTICOAGULANT THERAPY
     Dosage: UNK
     Route: 065

REACTIONS (8)
  - Anticoagulation drug level above therapeutic [Fatal]
  - Subdural haemorrhage [Fatal]
  - Intraventricular haemorrhage [Unknown]
  - Subarachnoid haemorrhage [Fatal]
  - Disease recurrence [Fatal]
  - Haematoma [Unknown]
  - Cerebral haemorrhage [Unknown]
  - Anticoagulation drug level below therapeutic [Unknown]
